FAERS Safety Report 17510836 (Version 1)
Quarter: 2020Q1

REPORT INFORMATION
  Report Type: Spontaneous
  Country: US (occurrence: BH)
  Receive Date: 20200306
  Receipt Date: 20200306
  Transmission Date: 20200409
  Serious: No
  Sender: FDA-Public Use
  Company Number: US-BAUSCH-BL-2020-003773

PATIENT

DRUGS (2)
  1. LUMIFY [Suspect]
     Active Substance: BRIMONIDINE TARTRATE
     Indication: OCULAR HYPERAEMIA
     Dosage: FOR A MONTHS IN EYES, OLD BOTTLE
     Route: 047
  2. LUMIFY [Suspect]
     Active Substance: BRIMONIDINE TARTRATE
     Dosage: IN EYES, NEW 4 BOTTLES
     Route: 047

REACTIONS (7)
  - Ocular hyperaemia [Unknown]
  - Drug intolerance [Unknown]
  - Eye pain [Not Recovered/Not Resolved]
  - Product counterfeit [Unknown]
  - Condition aggravated [Unknown]
  - Headache [Not Recovered/Not Resolved]
  - Eye swelling [Unknown]
